FAERS Safety Report 17564556 (Version 1)
Quarter: 2020Q1

REPORT INFORMATION
  Report Type: Spontaneous
  Country: US (occurrence: US)
  Receive Date: 20200320
  Receipt Date: 20200320
  Transmission Date: 20200409
  Serious: Yes (Hospitalization, Other)
  Sender: FDA-Public Use
  Company Number: US-BRISTOL-MYERS SQUIBB COMPANY-BMS-2020-020916

PATIENT
  Age: 39 Year
  Sex: Female

DRUGS (1)
  1. WARFARIN SODIUM. [Suspect]
     Active Substance: WARFARIN SODIUM
     Indication: ATRIOVENTRICULAR SEPTAL DEFECT
     Dosage: UNK
     Route: 065

REACTIONS (2)
  - Peritoneal haemorrhage [Recovered/Resolved]
  - Haemorrhagic ovarian cyst [Recovered/Resolved]
